FAERS Safety Report 14967069 (Version 1)
Quarter: 2018Q2

REPORT INFORMATION
  Report Type: Spontaneous
  Country: MY (occurrence: MY)
  Receive Date: 20180604
  Receipt Date: 20180604
  Transmission Date: 20180711
  Serious: Yes (Death, Life-Threatening)
  Sender: FDA-Public Use
  Company Number: MY-CHEPLA-C20170556

PATIENT
  Age: 59 Year
  Sex: Male

DRUGS (5)
  1. ATRA [Suspect]
     Active Substance: TRETINOIN
     Indication: ACUTE PROMYELOCYTIC LEUKAEMIA
  2. IDARUBICIN [Suspect]
     Active Substance: IDARUBICIN
     Indication: LEUKAEMIA RECURRENT
  3. METHOTREXATE. [Suspect]
     Active Substance: METHOTREXATE
     Indication: LEUKAEMIA RECURRENT
  4. MERCAPTOPURINE. [Suspect]
     Active Substance: MERCAPTOPURINE
     Indication: LEUKAEMIA RECURRENT
  5. MITOXANTRONE [Suspect]
     Active Substance: MITOXANTRONE HYDROCHLORIDE
     Indication: LEUKAEMIA RECURRENT

REACTIONS (4)
  - Leukaemia recurrent [Recovered/Resolved]
  - Pneumonia [Fatal]
  - Myelodysplastic syndrome [Recovered/Resolved with Sequelae]
  - Acute myeloid leukaemia [Fatal]
